FAERS Safety Report 6761089-8 (Version None)
Quarter: 2010Q2

REPORT INFORMATION
  Report Type: 
  Country: None (occurrence: None)
  Receive Date: 20100608
  Receipt Date: 20100528
  Transmission Date: 20101027
  Serious: Yes (Other)
  Sender: FDA-Public Use
  Company Number: US-RB-009157-10

PATIENT
  Age: 61 Year
  Sex: Female

DRUGS (1)
  1. SUBOXONE [Suspect]
     Indication: DRUG USE FOR UNKNOWN INDICATION
     Dosage: DOSING DETAILS UNKNOWN
     Route: 065

REACTIONS (10)
  - ANXIETY [None]
  - ARTHRALGIA [None]
  - ARTHRITIS [None]
  - BREAST PAIN [None]
  - CHEST PAIN [None]
  - CONSTIPATION [None]
  - INSOMNIA [None]
  - MEMORY IMPAIRMENT [None]
  - NEOPLASM [None]
  - PELVIC PAIN [None]
